FAERS Safety Report 13302940 (Version 1)
Quarter: 2017Q1

REPORT INFORMATION
  Report Type: Spontaneous
  Country: JP (occurrence: JP)
  Receive Date: 20170307
  Receipt Date: 20170307
  Transmission Date: 20170428
  Serious: Yes (Death)
  Sender: FDA-Public Use
  Company Number: JP-BAYER-2017-031522

PATIENT
  Age: 62 Year
  Sex: Female

DRUGS (1)
  1. NEXAVAR [Suspect]
     Active Substance: SORAFENIB
     Indication: THYROID CANCER
     Dosage: 800 MG DAILY
     Route: 048
     Dates: start: 20161213, end: 20170220

REACTIONS (3)
  - Thyroid cancer [Fatal]
  - Hypertension [Recovered/Resolved]
  - Constipation [None]

NARRATIVE: CASE EVENT DATE: 20170208
